FAERS Safety Report 5300043-X (Version None)
Quarter: 2007Q2

REPORT INFORMATION
  Report Type: 
  Country: None (occurrence: None)
  Receive Date: 20070410
  Receipt Date: 20070330
  Transmission Date: 20071010
  Serious: Yes (Hospitalization)
  Sender: FDA-Public Use
  Company Number: B0461658A

PATIENT
  Age: 38 Year
  Sex: Male

DRUGS (7)
  1. PAXIL [Suspect]
     Indication: DEPRESSION
     Dosage: 20 MG / PER DAY / ORAL
     Route: 048
     Dates: start: 20061020
  2. BROTIZOLAM [Concomitant]
  3. ETHYL LOFLAZEPATE [Concomitant]
  4. LORAZEPAM [Concomitant]
  5. HALOXAZOLAM [Concomitant]
  6. PROHEPARUM [Concomitant]
  7. CHLORPROMAZINE HCL [Concomitant]

REACTIONS (5)
  - CONDITION AGGRAVATED [None]
  - DEPRESSION [None]
  - INTENTIONAL OVERDOSE [None]
  - SELF INJURIOUS BEHAVIOUR [None]
  - SUICIDE ATTEMPT [None]
